FAERS Safety Report 7555590-7 (Version None)
Quarter: 2011Q2

REPORT INFORMATION
  Report Type: 
  Country: None (occurrence: None)
  Receive Date: 20110617
  Receipt Date: 20080417
  Transmission Date: 20111010
  Serious: Yes (Other)
  Sender: FDA-Public Use
  Company Number: PHHY2008CA06175

PATIENT
  Sex: Male

DRUGS (10)
  1. COTAZYM [Concomitant]
     Dosage: 300 MG, 10DF/DAY
  2. CELEBREX [Concomitant]
     Dosage: 100 MG, QD
  3. NASONEX [Concomitant]
  4. EFFEXOR [Concomitant]
     Dosage: 75 MG, QD
  5. INHIBACE [Concomitant]
     Dosage: 10 MG, QD
  6. INDAPAMIDE [Concomitant]
     Indication: BLOOD PRESSURE
     Dosage: 1.25 MG, QD
  7. TIAZAC [Concomitant]
     Dosage: 240 MG, UNK
  8. PANTOPRAZOLE SODIUM [Concomitant]
     Dosage: 40 MG, QD
  9. SANDOSTATIN LAR [Suspect]
     Dosage: 60 MG, TIW
     Route: 030
     Dates: start: 20040701
  10. BISOPROLOL FUMARATE [Concomitant]
     Dosage: 5 MG, QD

REACTIONS (2)
  - BLOOD PRESSURE DECREASED [None]
  - HERPES ZOSTER [None]
